FAERS Safety Report 5229051-4 (Version None)
Quarter: 2007Q1

REPORT INFORMATION
  Report Type: 
  Country: None (occurrence: None)
  Receive Date: 20061201
  Receipt Date: 20060802
  Transmission Date: 20070707
  Serious: No
  Sender: FDA-Public Use
  Company Number: US200608000613

PATIENT
  Age: 31 Year
  Sex: Female

DRUGS (4)
  1. CYMBALTA [Suspect]
     Indication: HEADACHE
     Dosage: 90 MG
     Dates: start: 20050801
  2. ORAL CONTRACEPTIVE NOS (ORAL CONTRACEPTIVE NOS) [Concomitant]
  3. SINGULAIR [Concomitant]
  4. PRILOSEC [Concomitant]

REACTIONS (3)
  - FALL [None]
  - HEADACHE [None]
  - HYPOTENSION [None]
